FAERS Safety Report 6401570-4 (Version None)
Quarter: 2009Q4

REPORT INFORMATION
  Report Type: 
  Country: None (occurrence: None)
  Receive Date: 20091013
  Receipt Date: 20091013
  Transmission Date: 20100525
  Serious: Yes (Other)
  Sender: FDA-Public Use
  Company Number: None

PATIENT
  Age: 38 Year
  Sex: Male
  Weight: 113.3993 kg

DRUGS (1)
  1. CIPRO [Suspect]
     Dosage: UNKNOWN 2 OR 3 TIMES A DAY IV DRIP
     Route: 041

REACTIONS (8)
  - ANXIETY [None]
  - CONVULSION [None]
  - DIARRHOEA [None]
  - DYSURIA [None]
  - NERVOUS SYSTEM DISORDER [None]
  - PANIC ATTACK [None]
  - RENAL IMPAIRMENT [None]
  - URINARY TRACT INFECTION [None]
